FAERS Safety Report 14455602 (Version 4)
Quarter: 2018Q4

REPORT INFORMATION
  Report Type: Spontaneous
  Country: US (occurrence: US)
  Receive Date: 20180129
  Receipt Date: 20181010
  Transmission Date: 20190204
  Serious: Yes (Life-Threatening, Hospitalization, Other)
  Sender: FDA-Public Use
  Company Number: US-BAUSCH-BL-2018-002309

PATIENT
  Age: 84 Year
  Sex: Female

DRUGS (8)
  1. BIMATOPROST. [Concomitant]
     Active Substance: BIMATOPROST
     Indication: GLAUCOMA
     Dosage: 1 DROP IN EACH EYE EVERY EVENING
  2. METOCLOPRAMIDE. [Suspect]
     Active Substance: METOCLOPRAMIDE
     Indication: IMPAIRED GASTRIC EMPTYING
     Dosage: TOTAL OF FOUR 10-MG ORAL DOSES OF METOCLOPRAMIDE ADMINISTERED EVERY 8 HOURS
     Route: 048
  3. PANTOPRAZOLE [Concomitant]
     Active Substance: PANTOPRAZOLE
     Indication: PRODUCT USED FOR UNKNOWN INDICATION
     Route: 042
  4. DORZOLAMIDE/ TIMOLOL [Concomitant]
     Indication: GLAUCOMA
     Dosage: 1 DROP EACH EYE EVERY EVENING
  5. HEPARIN [Concomitant]
     Active Substance: HEPARIN SODIUM
     Indication: PRODUCT USED FOR UNKNOWN INDICATION
     Dosage: 5,000 UNITS SUBCUTANEOUSLY EVERY 8 HOURS
     Route: 058
  6. QUETIAPINE. [Concomitant]
     Active Substance: QUETIAPINE
     Indication: SLEEP DISORDER
     Dosage: AT BEDTIME
  7. SIMVASTATIN. [Concomitant]
     Active Substance: SIMVASTATIN
     Indication: GLAUCOMA
     Dosage: AT BEDTIME
     Route: 048
  8. HYDROCHLOROTHIAZIDE. [Concomitant]
     Active Substance: HYDROCHLOROTHIAZIDE
     Indication: HYPERTENSION
     Route: 048

REACTIONS (2)
  - Neuroleptic malignant syndrome [Recovered/Resolved]
  - Cardio-respiratory distress [Recovered/Resolved]
